FAERS Safety Report 9536135 (Version 1)
Quarter: 2013Q2

REPORT INFORMATION
  Report Type: Spontaneous
  Country: US (occurrence: None)
  Receive Date: 20130517
  Receipt Date: 20130517
  Transmission Date: 20140414
  Serious: Yes (Other)
  Sender: FDA-Public Use
  Company Number: 1000042396

PATIENT
  Age: 71 Year
  Sex: Male

DRUGS (3)
  1. VIIBRYD [Suspect]
     Indication: DEPRESSION
     Route: 048
     Dates: start: 20130108, end: 20130114
  2. TRELSTAR (TRIPTORELIN EMBONATE) (TRIPTORELIN EMBONATE) [Concomitant]
  3. DONNATAL(DONNATAL)(DONNATAL) [Concomitant]

REACTIONS (1)
  - Prostatic specific antigen increased [None]
